FAERS Safety Report 17740471 (Version 1)
Quarter: 2020Q2

REPORT INFORMATION
  Report Type: Spontaneous
  Country: US (occurrence: US)
  Receive Date: 20200502
  Receipt Date: 20200502
  Transmission Date: 20200714
  Serious: Yes (Hospitalization)
  Sender: FDA-Public Use
  Company Number: None

PATIENT
  Age: 76 Year
  Sex: Male
  Weight: 198 kg

DRUGS (3)
  1. GEMCITABINE HYDROCHLORIDE. [Suspect]
     Active Substance: GEMCITABINE HYDROCHLORIDE
     Dates: end: 20200204
  2. NEULASTA [Suspect]
     Active Substance: PEGFILGRASTIM
     Dates: end: 20200206
  3. CISPLATIN. [Suspect]
     Active Substance: CISPLATIN
     Dates: end: 20200205

REACTIONS (6)
  - Dyspnoea [None]
  - Dizziness [None]
  - Renal disorder [None]
  - Kidney infection [None]
  - Urinary cystectomy [None]
  - Metabolic acidosis [None]

NARRATIVE: CASE EVENT DATE: 20200419
